FAERS Safety Report 16715932 (Version 1)
Quarter: 2019Q3

REPORT INFORMATION
  Report Type: Report from Study
  Country: BE (occurrence: BE)
  Receive Date: 20190819
  Receipt Date: 20190819
  Transmission Date: 20191005
  Serious: Yes (Hospitalization, Other)
  Sender: FDA-Public Use
  Company Number: BE-MYLANLABS-2019M1076435

PATIENT
  Age: 63 Year
  Sex: Female
  Weight: 57 kg

DRUGS (17)
  1. OXALIPLATIN. [Suspect]
     Active Substance: OXALIPLATIN
     Dosage: 140.25 MG, QCY
     Route: 042
     Dates: start: 20181220, end: 20181220
  2. CLEXANE [Concomitant]
     Active Substance: ENOXAPARIN SODIUM
     Indication: DEEP VEIN THROMBOSIS
     Dosage: UNK
     Dates: start: 20181206
  3. OXALIPLATIN. [Suspect]
     Active Substance: OXALIPLATIN
     Indication: PANCREATIC CARCINOMA METASTATIC
     Dosage: 140.25 MG, QCY
     Route: 042
     Dates: start: 20180628, end: 20180628
  4. OXALIPLATIN. [Suspect]
     Active Substance: OXALIPLATIN
     Dosage: 0.4 MG, QCY
     Route: 058
     Dates: start: 20180628, end: 20180628
  5. LITICAN                            /00690802/ [Concomitant]
     Indication: NAUSEA
     Dosage: UNK
     Dates: start: 20180703
  6. PEGILODECAKIN [Suspect]
     Active Substance: PEGILODECAKIN
     Dosage: 0.4 MG, QCY
     Route: 058
     Dates: start: 20181222
  7. CALCIUM FOLINATE [Suspect]
     Active Substance: LEUCOVORIN CALCIUM
     Dosage: 660 MG, QCY
     Route: 042
     Dates: start: 20181220, end: 20181220
  8. MATRIFEN [Concomitant]
     Active Substance: FENTANYL
     Indication: BACK PAIN
     Dosage: UNK
     Dates: start: 20181220
  9. OMEPRAZOLE. [Concomitant]
     Active Substance: OMEPRAZOLE
     Indication: PROPHYLAXIS
     Dosage: UNK
     Dates: start: 20180728
  10. FLUOROURACIL. [Suspect]
     Active Substance: FLUOROURACIL
     Indication: PANCREATIC CARCINOMA METASTATIC
     Dosage: 660 MG, QCY
     Route: 042
     Dates: start: 20180628, end: 20180628
  11. FLUOROURACIL. [Suspect]
     Active Substance: FLUOROURACIL
     Dosage: 660 MG, QCY
     Route: 042
     Dates: start: 20181222, end: 20181222
  12. FLUOROURACIL. [Suspect]
     Active Substance: FLUOROURACIL
     Dosage: 3960 MG, QCY
     Route: 040
     Dates: start: 20180628, end: 20180628
  13. OXYNORM [Concomitant]
     Active Substance: OXYCODONE HYDROCHLORIDE
     Indication: BACK PAIN
     Dosage: UNK
  14. PEGILODECAKIN [Suspect]
     Active Substance: PEGILODECAKIN
     Indication: PANCREATIC CARCINOMA METASTATIC
     Dosage: 0.4 MG, QCY
     Route: 058
     Dates: start: 20180628, end: 20180628
  15. FLUOROURACIL. [Suspect]
     Active Substance: FLUOROURACIL
     Dosage: 3960 MG, QCY
     Route: 040
     Dates: start: 20181222, end: 20181222
  16. CALCIUM FOLINATE [Suspect]
     Active Substance: LEUCOVORIN CALCIUM
     Indication: PANCREATIC CARCINOMA METASTATIC
     Dosage: 660 MG, QCY
     Route: 042
     Dates: start: 20180628, end: 20180628
  17. LITICAN                            /00690802/ [Concomitant]
     Indication: CHEMOTHERAPY

REACTIONS (8)
  - Ascites [Unknown]
  - Pain [Unknown]
  - Endoscopic retrograde cholangiopancreatography [Unknown]
  - Cholangitis [Not Recovered/Not Resolved]
  - Gastrointestinal perforation [Unknown]
  - Myalgia [Unknown]
  - C-reactive protein increased [Unknown]
  - Body temperature increased [Unknown]

NARRATIVE: CASE EVENT DATE: 20190207
